FAERS Safety Report 16700511 (Version 1)
Quarter: 2019Q3

REPORT INFORMATION
  Report Type: Spontaneous
  Country: GB (occurrence: GB)
  Receive Date: 20190814
  Receipt Date: 20190814
  Transmission Date: 20191004
  Serious: Yes (Hospitalization, Other)
  Sender: FDA-Public Use
  Company Number: GB-009507513-1908GBR004425

PATIENT
  Sex: Male

DRUGS (2)
  1. EMTRICITABINE (+) TENOFOVIR [Suspect]
     Active Substance: EMTRICITABINE\TENOFOVIR
  2. ISENTRESS [Suspect]
     Active Substance: RALTEGRAVIR POTASSIUM
     Route: 048

REACTIONS (1)
  - Pneumonia [Unknown]
